FAERS Safety Report 17185396 (Version 1)
Quarter: 2019Q4

REPORT INFORMATION
  Report Type: Spontaneous
  Country: US (occurrence: US)
  Receive Date: 20191220
  Receipt Date: 20191220
  Transmission Date: 20200122
  Serious: No
  Sender: FDA-Public Use
  Company Number: US-THERAPEUTICSMD-2019TMD02912

PATIENT
  Age: 50 Year
  Sex: Female
  Weight: 56.24 kg

DRUGS (4)
  1. IMVEXXY [Suspect]
     Active Substance: ESTRADIOL
     Indication: ATROPHIC VULVOVAGINITIS
     Dosage: 10 ?G, 1X/DAY BEFORE BED
     Route: 067
     Dates: start: 201908, end: 201908
  2. DAILY VITAMIN [Concomitant]
     Active Substance: VITAMINS
  3. IMVEXXY [Suspect]
     Active Substance: ESTRADIOL
     Indication: BLOOD OESTROGEN DECREASED
  4. IMVEXXY [Suspect]
     Active Substance: ESTRADIOL
     Indication: DYSPAREUNIA

REACTIONS (2)
  - Vaginal haemorrhage [Recovered/Resolved]
  - Peripheral swelling [Recovering/Resolving]

NARRATIVE: CASE EVENT DATE: 201908
